FAERS Safety Report 5674227-5 (Version None)
Quarter: 2008Q1

REPORT INFORMATION
  Report Type: 
  Country: None (occurrence: None)
  Receive Date: 20080320
  Receipt Date: 20080311
  Transmission Date: 20080703
  Serious: Yes (Other)
  Sender: FDA-Public Use
  Company Number: US-ROCHE-552590

PATIENT
  Age: 72 Year
  Sex: Female

DRUGS (1)
  1. XELODA [Suspect]
     Indication: COLORECTAL CANCER METASTATIC
     Dosage: FORM AS PILL 2 WEEKS ON AND 1 WEEK OFF AND HAD TOTAL OF 8 CYCLES
     Route: 048
     Dates: start: 20071004, end: 20080311

REACTIONS (5)
  - ANOREXIA [None]
  - CARCINOEMBRYONIC ANTIGEN INCREASED [None]
  - DRUG INEFFECTIVE [None]
  - PALMAR-PLANTAR ERYTHRODYSAESTHESIA SYNDROME [None]
  - WEIGHT DECREASED [None]
